FAERS Safety Report 12220855 (Version 3)
Quarter: 2016Q3

REPORT INFORMATION
  Report Type: Spontaneous
  Country: US (occurrence: US)
  Receive Date: 20160330
  Receipt Date: 20160825
  Transmission Date: 20161109
  Serious: No
  Sender: FDA-Public Use
  Company Number: US-PFIZER INC-2016136467

PATIENT
  Age: 56 Year
  Sex: Male
  Weight: 82 kg

DRUGS (2)
  1. CALCIUM CITRATE [Interacting]
     Active Substance: CALCIUM CITRATE
     Dosage: 200 IU, DAILY
     Dates: start: 2011
  2. HYDROCORTISONE. [Suspect]
     Active Substance: HYDROCORTISONE
     Indication: ADRENAL DISORDER
     Dosage: 10 MG, UNK (1 IN THE MORNING AND 2 IN THE AFTERNOON)
     Dates: start: 201103

REACTIONS (2)
  - Calcium deficiency [Unknown]
  - Drug interaction [Unknown]
